FAERS Safety Report 6806459-4 (Version None)
Quarter: 2010Q2

REPORT INFORMATION
  Report Type: 
  Country: None (occurrence: None)
  Receive Date: 20100629
  Receipt Date: 20080206
  Transmission Date: 20101027
  Serious: No
  Sender: FDA-Public Use
  Company Number: US-PFIZER INC-2008011906

PATIENT
  Sex: Female
  Weight: 86.363 kg

DRUGS (6)
  1. TIKOSYN [Suspect]
     Indication: ATRIAL FIBRILLATION
     Route: 048
     Dates: start: 20070701
  2. WARFARIN SODIUM [Concomitant]
  3. LASIX [Concomitant]
  4. VITAMIN B-12 [Concomitant]
  5. VITAMIN B6 [Concomitant]
  6. VITAMIN D [Concomitant]

REACTIONS (2)
  - GASTRIC DISORDER [None]
  - PAIN IN EXTREMITY [None]
